FAERS Safety Report 4292247-2 (Version None)
Quarter: 2004Q1

REPORT INFORMATION
  Report Type: 
  Country: None (occurrence: None)
  Receive Date: 20040211
  Receipt Date: 20040205
  Transmission Date: 20041129
  Serious: Yes (Other)
  Sender: FDA-Public Use
  Company Number: CA-GLAXOSMITHKLINE-A0497127A

PATIENT
  Sex: Male

DRUGS (1)
  1. AMERGE [Suspect]
     Indication: ILL-DEFINED DISORDER
     Dosage: 4TAB PER DAY
     Route: 048

REACTIONS (1)
  - SEROTONIN SYNDROME [None]
